FAERS Safety Report 9118301 (Version 1)
Quarter: 2013Q1

REPORT INFORMATION
  Report Type: Spontaneous
  Country: US (occurrence: None)
  Receive Date: 20130221
  Receipt Date: 20130221
  Transmission Date: 20140127
  Serious: Yes (Other)
  Sender: FDA-Public Use
  Company Number: None

PATIENT
  Sex: Female

DRUGS (4)
  1. CYMBALTA UP TO 90MG THEN DECREASED TO 60MG LILLY [Suspect]
     Indication: DEPRESSION
  2. LAMICTAL [Concomitant]
  3. TRAMADOL [Concomitant]
  4. VALIUM [Concomitant]

REACTIONS (8)
  - Dizziness [None]
  - Dry mouth [None]
  - Increased appetite [None]
  - Headache [None]
  - Constipation [None]
  - Mania [None]
  - Fatigue [None]
  - Weight increased [None]
